FAERS Safety Report 9556643 (Version 1)
Quarter: 2013Q3

REPORT INFORMATION
  Report Type: Spontaneous
  Country: US (occurrence: None)
  Receive Date: 20130909
  Receipt Date: 20130909
  Transmission Date: 20140515
  Serious: No
  Sender: FDA-Public Use
  Company Number: 372892

PATIENT
  Age: 22 Year
  Sex: Female
  Weight: 59 kg

DRUGS (3)
  1. VICTOZA (LIRAGLUTIDE) SOLUTION FOR INJECTION, 6MG/ML [Suspect]
     Indication: TYPE 2 DIABETES MELLITUS
     Route: 058
     Dates: start: 201212, end: 201302
  2. VITAMIN D /00107901/ (ERGOCALCIFEROL) [Concomitant]
  3. MULTIVITAMIN /07504101/(VITAMINS NOS) [Concomitant]

REACTIONS (2)
  - Pancreatitis [None]
  - Urinary tract infection [None]
